FAERS Safety Report 18367941 (Version 1)
Quarter: 2020Q4

REPORT INFORMATION
  Report Type: Report from Study
  Country: CA (occurrence: CA)
  Receive Date: 20201009
  Receipt Date: 20201009
  Transmission Date: 20210114
  Serious: Yes (Hospitalization)
  Sender: FDA-Public Use
  Company Number: CA-JNJFOC-20201002847

PATIENT
  Age: 74 Year
  Sex: Female
  Weight: 96 kg

DRUGS (2)
  1. STELARA [Suspect]
     Active Substance: USTEKINUMAB
     Dosage: FOR OFF LABEL DOSE
     Route: 058
  2. STELARA [Suspect]
     Active Substance: USTEKINUMAB
     Indication: CROHN^S DISEASE
     Dosage: THE PATIENT HAD HER 11 TH INJECTION
     Route: 058
     Dates: start: 20190311

REACTIONS (4)
  - Viral diarrhoea [Not Recovered/Not Resolved]
  - Confusional state [Recovered/Resolved]
  - Off label use [Unknown]
  - Product use issue [Unknown]

NARRATIVE: CASE EVENT DATE: 20200923
